FAERS Safety Report 12619247 (Version 1)
Quarter: 2016Q3

REPORT INFORMATION
  Report Type: Spontaneous
  Country: FR (occurrence: FR)
  Receive Date: 20160803
  Receipt Date: 20160803
  Transmission Date: 20161109
  Serious: Yes (Death, Hospitalization)
  Sender: FDA-Public Use
  Company Number: FR-PFIZER INC-2016214957

PATIENT
  Age: 56 Year
  Sex: Female

DRUGS (16)
  1. CANCIDAS [Suspect]
     Active Substance: CASPOFUNGIN ACETATE
     Dosage: UNK
     Dates: start: 20160120, end: 20160219
  2. ZYVOXID [Suspect]
     Active Substance: LINEZOLID
     Dosage: UNK
     Route: 041
     Dates: start: 20160215, end: 20160218
  3. TAZOCILLINE [Concomitant]
     Active Substance: PIPERACILLIN SODIUM\TAZOBACTAM SODIUM
     Dosage: UNK
     Dates: start: 20160103, end: 20160106
  4. ZYVOXID [Suspect]
     Active Substance: LINEZOLID
     Indication: ANTIBIOTIC THERAPY
     Dosage: UNK
     Route: 041
     Dates: start: 20160120, end: 20160126
  5. ZYVOXID [Suspect]
     Active Substance: LINEZOLID
     Dosage: UNK
     Route: 041
     Dates: start: 20160129, end: 20160208
  6. CANCIDAS [Suspect]
     Active Substance: CASPOFUNGIN ACETATE
     Dosage: UNK
     Dates: start: 20151230, end: 20160106
  7. TAZOCILLINE [Concomitant]
     Active Substance: PIPERACILLIN SODIUM\TAZOBACTAM SODIUM
     Dosage: UNK
     Dates: start: 20160122, end: 20160126
  8. COLIMYCINE /00013206/ [Concomitant]
     Indication: ANTIBIOTIC THERAPY
  9. FOSFOMYCIN [Concomitant]
     Active Substance: FOSFOMYCIN
     Indication: ANTIBIOTIC THERAPY
  10. TIENAM [Suspect]
     Active Substance: CILASTATIN SODIUM\IMIPENEM
     Dosage: 1 DF, CYCLIC
     Route: 041
     Dates: start: 20151225, end: 20160103
  11. INEXIUM /01479302/ [Concomitant]
     Active Substance: ESOMEPRAZOLE MAGNESIUM
     Dosage: UNK
     Dates: start: 20151228, end: 20160222
  12. VANCOMYCIN [Concomitant]
     Active Substance: VANCOMYCIN
     Dosage: UNK
     Dates: start: 20151226, end: 20160103
  13. TIENAM [Suspect]
     Active Substance: CILASTATIN SODIUM\IMIPENEM
     Dosage: 1 DF, CYCLIC
     Route: 041
     Dates: start: 20160113, end: 20160121
  14. TIENAM [Suspect]
     Active Substance: CILASTATIN SODIUM\IMIPENEM
     Dosage: 1 DF, CYCLIC
     Route: 041
     Dates: start: 20160108, end: 20160205
  15. TIENAM [Suspect]
     Active Substance: CILASTATIN SODIUM\IMIPENEM
     Dosage: 1 DF, CYCLIC
     Route: 041
     Dates: start: 20160209, end: 20160217
  16. FLAGYL [Concomitant]
     Active Substance: METRONIDAZOLE\METRONIDAZOLE HYDROCHLORIDE
     Indication: ANTIBIOTIC THERAPY

REACTIONS (5)
  - Toxic skin eruption [Not Recovered/Not Resolved]
  - Monocytosis [Recovering/Resolving]
  - Septic shock [Fatal]
  - Eosinophilia [Recovering/Resolving]
  - Drug ineffective [Fatal]

NARRATIVE: CASE EVENT DATE: 201601
